FAERS Safety Report 20026077 (Version 1)
Quarter: 2021Q4

REPORT INFORMATION
  Report Type: Spontaneous
  Country: CA (occurrence: CA)
  Receive Date: 20211102
  Receipt Date: 20211102
  Transmission Date: 20220303
  Serious: Yes (Hospitalization)
  Sender: FDA-Public Use
  Company Number: CA-TEVA-2021-CA-1971355

PATIENT
  Age: 17 Year
  Sex: Female

DRUGS (1)
  1. OLANZAPINE [Suspect]
     Active Substance: OLANZAPINE
     Indication: Product used for unknown indication
     Route: 065

REACTIONS (15)
  - Abdominal pain [Unknown]
  - Abnormal behaviour [Unknown]
  - Aggression [Unknown]
  - Agitation [Unknown]
  - Hallucination [Unknown]
  - Headache [Unknown]
  - Hyporesponsive to stimuli [Unknown]
  - Lethargy [Unknown]
  - Miosis [Unknown]
  - Sluggishness [Unknown]
  - Tachycardia [Unknown]
  - Toxicity to various agents [Unknown]
  - Vomiting [Unknown]
  - Slow response to stimuli [Unknown]
  - Overdose [Unknown]
